FAERS Safety Report 9305534 (Version 1)
Quarter: 2013Q2

REPORT INFORMATION
  Report Type: Spontaneous
  Country: DE (occurrence: None)
  Receive Date: 20130520
  Receipt Date: 20130520
  Transmission Date: 20140414
  Serious: Yes (Death, Hospitalization)
  Sender: FDA-Public Use
  Company Number: SYM-2013-03733

PATIENT
  Age: 85 Year
  Sex: Female

DRUGS (9)
  1. ELONTRIL [Suspect]
     Indication: PRODUCT USED FOR UNKNOWN INDICATION
     Route: 048
     Dates: start: 20120719, end: 20120725
  2. DIAZEPAM [Suspect]
     Indication: DEPRESSION
     Route: 048
     Dates: start: 20120714, end: 20120724
  3. TAVOR [Suspect]
     Indication: PRODUCT USED FOR UNKNOWN INDICATION
     Route: 048
     Dates: start: 20120724
  4. HALDOL [Suspect]
     Indication: PRODUCT USED FOR UNKNOWN INDICATION
     Route: 048
     Dates: start: 20120712, end: 20120725
  5. VALSARTAN (VALSARTAN) (VALSARTAN) [Concomitant]
  6. HYDROCHLOROTHIAZIDE (HYDROCHLOROTHIAZIDE) (HYDROCHLOROTHIAZIDE) [Concomitant]
  7. BISOPROLOL(BISOPROLOL)(BISOPROLOL) [Concomitant]
  8. CORIFEO(LERCANIDIPINE HYDROCHLORIDE) (LERCANIDIPINE HYDROCHLORIDE) [Concomitant]
  9. LORAZEPAM(LORAZEPAM)(LORAZEPAM) [Concomitant]

REACTIONS (15)
  - Parkinsonism [None]
  - Sedation [None]
  - Mastication disorder [None]
  - Dysphagia [None]
  - Fall [None]
  - Pyrexia [None]
  - Tachycardia [None]
  - Myocardial infarction [None]
  - Pneumonia [None]
  - Aortic arteriosclerosis [None]
  - Drug interaction [None]
  - Hypoventilation [None]
  - Mobility decreased [None]
  - Circulatory collapse [None]
  - Cardiomegaly [None]
